FAERS Safety Report 6829434-2 (Version None)
Quarter: 2010Q3

REPORT INFORMATION
  Report Type: 
  Country: None (occurrence: None)
  Receive Date: 20100709
  Receipt Date: 20070309
  Transmission Date: 20110219
  Serious: No
  Sender: FDA-Public Use
  Company Number: US-PFIZER INC-2007019446

PATIENT
  Sex: Female
  Weight: 77.11 kg

DRUGS (10)
  1. CHANTIX [Suspect]
     Dates: start: 20070304
  2. OTHER NERVOUS SYSTEM DRUGS [Concomitant]
  3. LITHIUM CARBONATE [Concomitant]
     Route: 048
  4. GEODON [Concomitant]
     Route: 048
  5. TOPAMAX [Concomitant]
  6. ADDERALL 10 [Concomitant]
  7. HYDROCODONE BITARTRATE [Concomitant]
  8. AMBIEN [Concomitant]
     Indication: SLEEP DISORDER
  9. PEPCID [Concomitant]
  10. CELEXA [Concomitant]

REACTIONS (5)
  - BREATH ODOUR [None]
  - CONSTIPATION [None]
  - INSOMNIA [None]
  - NIGHTMARE [None]
  - TREMOR [None]
